FAERS Safety Report 6231512-6 (Version None)
Quarter: 2009Q2

REPORT INFORMATION
  Report Type: 
  Country: None (occurrence: None)
  Receive Date: 20090616
  Receipt Date: 20090608
  Transmission Date: 20091009
  Serious: Yes (Hospitalization, Other)
  Sender: FDA-Public Use
  Company Number: B0577504A

PATIENT
  Sex: Female

DRUGS (4)
  1. PAROXETINE HYDROCHLORIDE [Suspect]
     Indication: DEPRESSION
     Route: 048
  2. AMOXAPINE [Suspect]
     Route: 048
  3. SULPIRIDE [Suspect]
     Route: 065
  4. RADIOTHERAPY [Concomitant]

REACTIONS (6)
  - APHASIA [None]
  - CONSTIPATION [None]
  - DELIRIUM [None]
  - DYSPHAGIA [None]
  - EATING DISORDER [None]
  - NEUROLEPTIC MALIGNANT SYNDROME [None]
